FAERS Safety Report 24692618 (Version 1)
Quarter: 2024Q4

REPORT INFORMATION
  Report Type: Spontaneous
  Country: US (occurrence: None)
  Receive Date: 20241203
  Receipt Date: 20241203
  Transmission Date: 20250115
  Serious: Yes (unspecified)
  Sender: Public
  Company Number: None

PATIENT
  Age: 75 Year
  Sex: Male

DRUGS (1)
  1. TICAGRELOR [Suspect]
     Active Substance: TICAGRELOR
     Indication: Coronary arterial stent insertion
     Route: 048

REACTIONS (2)
  - Cough [None]
  - Retinal tear [None]

NARRATIVE: CASE EVENT DATE: 20240227
